FAERS Safety Report 6849289-X (Version None)
Quarter: 2010Q3

REPORT INFORMATION
  Report Type: 
  Country: None (occurrence: None)
  Receive Date: 20100716
  Receipt Date: 20080111
  Transmission Date: 20110219
  Serious: No
  Sender: FDA-Public Use
  Company Number: US-PFIZER INC-2007082660

PATIENT
  Sex: Female
  Weight: 75.9 kg

DRUGS (7)
  1. CHANTIX [Suspect]
     Indication: SMOKING CESSATION THERAPY
     Route: 048
     Dates: start: 20070829, end: 20070830
  2. DILANTIN [Suspect]
     Indication: INTRACRANIAL ANEURYSM
     Dates: start: 19940101
  3. TRIAMTERENE [Concomitant]
  4. LISINOPRIL [Concomitant]
  5. ZYRTEC [Concomitant]
  6. FLEXERIL [Concomitant]
  7. HYDROCODONE [Concomitant]

REACTIONS (2)
  - AGITATION [None]
  - TOBACCO USER [None]
